FAERS Safety Report 22227639 (Version 2)
Quarter: 2024Q3

REPORT INFORMATION
  Report Type: Spontaneous
  Country: FR (occurrence: FR)
  Receive Date: 20230419
  Receipt Date: 20240709
  Transmission Date: 20241016
  Serious: Yes (Hospitalization)
  Sender: RANBAXY
  Company Number: FR-AFSSAPS-TS2023000221

PATIENT
  Age: 84 Year
  Sex: Female

DRUGS (4)
  1. ESOMEPRAZOLE [Suspect]
     Active Substance: ESOMEPRAZOLE
     Indication: Gastrointestinal disorder
     Dosage: 40 MILLIGRAM, DAILY
     Route: 040
     Dates: start: 20230217, end: 20230220
  2. AUGMENTIN [Suspect]
     Active Substance: AMOXICILLIN\CLAVULANATE POTASSIUM
     Indication: Cholangitis
     Dosage: 1 GRAM, TID
     Route: 040
     Dates: start: 20230218
  3. PERFALGAN [Suspect]
     Active Substance: ACETAMINOPHEN
     Indication: Analgesic intervention supportive therapy
     Dosage: 1 GRAM, DAILY
     Route: 040
     Dates: start: 20230217
  4. PHLOROGLUCINOL [Suspect]
     Active Substance: PHLOROGLUCINOL
     Indication: Analgesic intervention supportive therapy
     Dosage: 80 MILLIGRAM, TID
     Route: 040
     Dates: start: 20230218

REACTIONS (2)
  - Thrombocytopenia [Not Recovered/Not Resolved]
  - Anaemia [Not Recovered/Not Resolved]

NARRATIVE: CASE EVENT DATE: 20230220
